FAERS Safety Report 5992002-9 (Version None)
Quarter: 2008Q4

REPORT INFORMATION
  Report Type: 
  Country: None (occurrence: None)
  Receive Date: 20081211
  Receipt Date: 20081201
  Transmission Date: 20090506
  Serious: No
  Sender: FDA-Public Use
  Company Number: US-B.I. PHARMACEUTICALS,INC./RIDGEFIELD-2008-BP-18014BP

PATIENT
  Age: 5 Year
  Sex: Male

DRUGS (3)
  1. ZANTAC 75 [Suspect]
     Indication: GASTROOESOPHAGEAL REFLUX DISEASE
     Dosage: 75MG
     Route: 048
     Dates: start: 20081201
  2. NOVOLOG [Concomitant]
     Indication: DIABETES MELLITUS
     Route: 058
  3. NOVOLIN [Concomitant]
     Indication: DIABETES MELLITUS
     Route: 058

REACTIONS (4)
  - CHEST PAIN [None]
  - DRUG INEFFECTIVE [None]
  - DYSPEPSIA [None]
  - INCORRECT DRUG DOSAGE FORM ADMINISTERED [None]
